FAERS Safety Report 5032050-9 (Version None)
Quarter: 2006Q2

REPORT INFORMATION
  Report Type: 
  Country: None (occurrence: None)
  Receive Date: 20060621
  Receipt Date: 20060615
  Transmission Date: 20061013
  Serious: Yes (Death, Life-Threatening)
  Sender: FDA-Public Use
  Company Number: LB-MERCK-0606USA02814

PATIENT
  Age: 50 Year
  Sex: Male

DRUGS (1)
  1. PRIMAXIN [Suspect]
     Indication: SEPSIS
     Route: 042

REACTIONS (2)
  - DEATH [None]
  - PSEUDOMONAS INFECTION [None]
